FAERS Safety Report 8455531-4 (Version None)
Quarter: 2012Q2

REPORT INFORMATION
  Report Type: 
  Country: None (occurrence: None)
  Receive Date: 20120621
  Receipt Date: 20120618
  Transmission Date: 20120825
  Serious: Yes (Hospitalization, Other)
  Sender: FDA-Public Use
  Company Number: US-PFIZER INC-2012147305

PATIENT
  Sex: Female

DRUGS (3)
  1. CALAN [Suspect]
     Dosage: UNK
  2. GLUCOTROL XL [Suspect]
     Dosage: UNK
  3. LIPITOR [Suspect]
     Dosage: UNK

REACTIONS (4)
  - CARDIAC PACEMAKER INSERTION [None]
  - CARDIAC FAILURE [None]
  - PNEUMOTHORAX [None]
  - PULMONARY OEDEMA [None]
